FAERS Safety Report 18418861 (Version 1)
Quarter: 2020Q4

REPORT INFORMATION
  Report Type: Spontaneous
  Country: US (occurrence: US)
  Receive Date: 20201022
  Receipt Date: 20201022
  Transmission Date: 20210114
  Serious: Yes (Hospitalization)
  Sender: FDA-Public Use
  Company Number: None

PATIENT
  Age: 83 Year
  Sex: Female

DRUGS (13)
  1. BUPROPION. [Concomitant]
     Active Substance: BUPROPION
     Dates: start: 20200309
  2. XARELTO TAB [Concomitant]
     Dates: start: 20200814
  3. METOPROLOL. [Concomitant]
     Active Substance: METOPROLOL
     Dates: start: 20200309
  4. HYDROCODONE TAB [Concomitant]
     Dates: start: 20200910
  5. SUCRALFATE. [Concomitant]
     Active Substance: SUCRALFATE
     Dates: start: 20200926
  6. IRON TAB [Concomitant]
     Dates: start: 20181119
  7. HYDROCODONE POWDER [Concomitant]
     Dates: start: 20190821
  8. CLONIDINE. [Concomitant]
     Active Substance: CLONIDINE
     Dates: start: 20200309
  9. REPATHA [Suspect]
     Active Substance: EVOLOCUMAB
     Indication: HYPERLIPIDAEMIA
     Dosage: ?          OTHER FREQUENCY:EVERY 2 WEEKS;?
     Route: 058
     Dates: start: 20180619
  10. BACLOFEN TAB [Concomitant]
     Dates: start: 20200409
  11. PANTOPRAZOLE [Concomitant]
     Active Substance: PANTOPRAZOLE
     Dates: start: 20200309
  12. AMLODIPINE [Concomitant]
     Active Substance: AMLODIPINE BESYLATE
     Dates: start: 20200309
  13. TELMISARTAN. [Concomitant]
     Active Substance: TELMISARTAN
     Dates: start: 20200811

REACTIONS (3)
  - Thrombosis [None]
  - Arterectomy with graft replacement [None]
  - Haemoglobin decreased [None]

NARRATIVE: CASE EVENT DATE: 20200422
